FAERS Safety Report 18004889 (Version 2)
Quarter: 2020Q3

REPORT INFORMATION
  Report Type: Not Available
  Country: US (occurrence: US)
  Receive Date: 20200709
  Receipt Date: 20200717
  Transmission Date: 20201103
  Serious: Yes (Hospitalization, Other)
  Sender: FDA-Public Use
  Company Number: US-NEUROCRINE BIOSCIENCES INC.-2020NBI02273

PATIENT
  Age: 45 Year
  Sex: Female

DRUGS (3)
  1. INGREZZA [Suspect]
     Active Substance: VALBENAZINE
     Dosage: DOSE REDUCED
     Route: 048
  2. INGREZZA [Suspect]
     Active Substance: VALBENAZINE
     Route: 048
     Dates: end: 20200703
  3. INGREZZA [Suspect]
     Active Substance: VALBENAZINE
     Indication: TARDIVE DYSKINESIA
     Route: 048
     Dates: start: 20190712

REACTIONS (5)
  - Hospitalisation [Recovered/Resolved]
  - Somnolence [Recovered/Resolved]
  - Restlessness [Recovered/Resolved]
  - Unresponsive to stimuli [Recovered/Resolved]
  - Hypertension [Recovered/Resolved]

NARRATIVE: CASE EVENT DATE: 20200628
